FAERS Safety Report 5257703-9 (Version None)
Quarter: 2007Q1

REPORT INFORMATION
  Report Type: 
  Country: None (occurrence: None)
  Receive Date: 20070302
  Receipt Date: 20070217
  Transmission Date: 20070707
  Serious: Yes (Other)
  Sender: FDA-Public Use
  Company Number: 15740

PATIENT
  Age: 32 Year
  Sex: Male

DRUGS (4)
  1. BLEOMYCIN [Suspect]
     Indication: EXTRAGONADAL PRIMARY NON-SEMINOMA STAGE III
  2. CISPLATIN [Suspect]
     Indication: EXTRAGONADAL PRIMARY NON-SEMINOMA STAGE III
  3. ETOPOSIDE [Suspect]
     Indication: EXTRAGONADAL PRIMARY NON-SEMINOMA STAGE III
  4. HIGH DOSE CHEMOTHERAPY [Suspect]
     Indication: EXTRAGONADAL PRIMARY NON-SEMINOMA STAGE III

REACTIONS (1)
  - AZOOSPERMIA [None]
